FAERS Safety Report 20048705 (Version 2)
Quarter: 2021Q4

REPORT INFORMATION
  Report Type: Spontaneous
  Country: JP (occurrence: JP)
  Receive Date: 20211109
  Receipt Date: 20211208
  Transmission Date: 20220303
  Serious: Yes (Hospitalization, Other)
  Sender: FDA-Public Use
  Company Number: JP-NBI-S202100330BIPI

PATIENT
  Age: 73 Year
  Sex: Male

DRUGS (4)
  1. JARDIANCE [Suspect]
     Active Substance: EMPAGLIFLOZIN
     Indication: Type 2 diabetes mellitus
     Route: 048
  2. METFORMIN HYDROCHLORIDE [Suspect]
     Active Substance: METFORMIN HYDROCHLORIDE
     Indication: Type 2 diabetes mellitus
     Route: 048
  3. MITIGLINIDE CALCIUM ANHYDROUS [Concomitant]
     Active Substance: MITIGLINIDE CALCIUM ANHYDROUS
     Indication: Type 2 diabetes mellitus
     Route: 065
  4. VILDAGLIPTIN [Concomitant]
     Active Substance: VILDAGLIPTIN
     Indication: Type 2 diabetes mellitus
     Route: 065

REACTIONS (7)
  - Lactic acidosis [Recovering/Resolving]
  - Ketoacidosis [Recovering/Resolving]
  - Dehydration [Recovering/Resolving]
  - Liver disorder [Recovering/Resolving]
  - Renal disorder [Recovering/Resolving]
  - Urinary tract infection [Recovering/Resolving]
  - Accident [Recovering/Resolving]
